FAERS Safety Report 10231324 (Version 4)
Quarter: 2014Q3

REPORT INFORMATION
  Report Type: Spontaneous
  Country: DE (occurrence: DE)
  Receive Date: 20140611
  Receipt Date: 20140923
  Transmission Date: 20150326
  Serious: Yes (Hospitalization)
  Sender: FDA-Public Use
  Company Number: DE-GLAXOSMITHKLINE-D0083988A

PATIENT
  Age: 30 Year
  Sex: Male
  Weight: 73 kg

DRUGS (1)
  1. MALARONE [Suspect]
     Active Substance: ATOVAQUONE\PROGUANIL HYDROCHLORIDE
     Indication: MALARIA PROPHYLAXIS
     Dosage: 350MG PER DAY
     Route: 048
     Dates: start: 20140403, end: 20140415

REACTIONS (22)
  - Depersonalisation [Recovered/Resolved]
  - Adjustment disorder [Recovered/Resolved]
  - Depressed mood [Recovered/Resolved]
  - Listless [Recovered/Resolved]
  - Hypervigilance [Recovered/Resolved]
  - Anxiety [Recovered/Resolved]
  - Feeling abnormal [Recovered/Resolved]
  - Mood altered [Recovered/Resolved]
  - Restlessness [Recovered/Resolved]
  - Fear [Recovered/Resolved]
  - Extrasystoles [Recovered/Resolved]
  - Decreased appetite [Recovered/Resolved]
  - Insomnia [Recovered/Resolved]
  - Tachycardia [Recovered/Resolved]
  - Somatoform disorder [Recovered/Resolved]
  - Hypochondriasis [Recovered/Resolved]
  - Nausea [Recovered/Resolved]
  - Retching [Recovered/Resolved]
  - Vomiting [Recovered/Resolved]
  - Anxiety [Recovered/Resolved]
  - Atrial fibrillation [Recovered/Resolved]
  - Depression [Recovered/Resolved]

NARRATIVE: CASE EVENT DATE: 201404
